FAERS Safety Report 7243301-4 (Version None)
Quarter: 2011Q1

REPORT INFORMATION
  Report Type: 
  Country: None (occurrence: None)
  Receive Date: 20110118
  Receipt Date: 20110104
  Transmission Date: 20110831
  Serious: Yes (Hospitalization)
  Sender: FDA-Public Use
  Company Number: DSA_44639_2011

PATIENT
  Sex: Male
  Weight: 80.7403 kg

DRUGS (8)
  1. TAMSULOSIN HCL [Suspect]
     Indication: NEPHROLITHIASIS
     Dosage: (0.4 MG ORAL)
     Route: 048
     Dates: start: 20090101
  2. BUPROPION HYDROCHLORIDE [Suspect]
     Indication: PRODUCT USED FOR UNKNOWN INDICATION
     Dosage: (DF)
  3. FENTANYL [Suspect]
     Indication: ABDOMINAL PAIN
     Dosage: (50 MCG PATCHES TRANSDERMAL) ; (DF PATCHES TRANSDERMAL)
     Route: 062
     Dates: start: 20080101, end: 20100820
  4. FENTANYL [Suspect]
     Indication: ABDOMINAL PAIN
     Dosage: (50 MCG PATCHES TRANSDERMAL) ; (DF PATCHES TRANSDERMAL)
     Route: 062
     Dates: start: 20100820
  5. BUPROPION [Suspect]
     Indication: DEPRESSION
     Dosage: (75 MG ORAL)
     Route: 048
     Dates: start: 20080101, end: 20100820
  6. PAXIL [Suspect]
     Indication: DEPRESSION
     Dosage: (30 MG DAILY ORAL)
     Route: 048
     Dates: start: 20080101
  7. KLONOPIN [Suspect]
     Indication: ANXIETY
     Dosage: (DF ORAL)
     Route: 048
     Dates: start: 20100501
  8. PROTONIX [Suspect]
     Indication: DUODENOGASTRIC REFLUX
     Dosage: (40 MG ORAL)
     Route: 048
     Dates: start: 19900101

REACTIONS (4)
  - CONVULSION [None]
  - UNRESPONSIVE TO STIMULI [None]
  - RESPIRATORY ARREST [None]
  - BREAKTHROUGH PAIN [None]
